FAERS Safety Report 17825017 (Version 1)
Quarter: 2020Q2

REPORT INFORMATION
  Report Type: Spontaneous
  Country: US (occurrence: US)
  Receive Date: 20200526
  Receipt Date: 20200526
  Transmission Date: 20200714
  Serious: No
  Sender: FDA-Public Use
  Company Number: US-SA-2020SA131667

PATIENT
  Age: 9 Year
  Sex: Female

DRUGS (4)
  1. CEPHALEXINE [Concomitant]
     Active Substance: CEPHALEXIN
  2. FLUTICASONE. [Concomitant]
     Active Substance: FLUTICASONE
  3. DUPIXENT [Suspect]
     Active Substance: DUPILUMAB
     Indication: DERMATITIS ATOPIC
     Dosage: UNK
  4. HYDROXYZINE HCL [Concomitant]
     Active Substance: HYDROXYZINE HYDROCHLORIDE

REACTIONS (1)
  - Off label use [Unknown]
